FAERS Safety Report 8095029-9 (Version None)
Quarter: 2012Q1

REPORT INFORMATION
  Report Type: 
  Country: None (occurrence: None)
  Receive Date: 20120131
  Receipt Date: 20120131
  Transmission Date: 20120608
  Serious: Yes (Other)
  Sender: FDA-Public Use
  Company Number: None

PATIENT
  Age: 60 Year
  Sex: Male
  Weight: 58.513 kg

DRUGS (1)
  1. NARDIL [Suspect]
     Indication: DEPRESSION
     Dosage: 75MG
     Dates: start: 19860101, end: 20120130

REACTIONS (8)
  - DRY EYE [None]
  - COORDINATION ABNORMAL [None]
  - FEELING ABNORMAL [None]
  - ECONOMIC PROBLEM [None]
  - JUDGEMENT IMPAIRED [None]
  - CATARACT [None]
  - DECREASED INTEREST [None]
  - TRANSIENT ISCHAEMIC ATTACK [None]
